FAERS Safety Report 8817926 (Version 1)
Quarter: 2012Q4

REPORT INFORMATION
  Report Type: 
  Country: GB (occurrence: GB)
  Receive Date: 20121004
  Receipt Date: 20121004
  Transmission Date: 20130627
  Serious: Yes (Other)
  Sender: FDA-Public Use
  Company Number: GB-ALLERGAN-1213595US

PATIENT
  Sex: Female

DRUGS (5)
  1. CHLORAMPHENICOL [Suspect]
     Indication: DRUG USE FOR UNKNOWN INDICATION
     Dosage: UNK UNK, qid
     Route: 047
  2. RANIBIZUMAB [Concomitant]
     Indication: NEOVASCULAR AGE-RELATED MACULAR DEGENERATION
  3. ACETAZOLAMIDE [Concomitant]
     Dosage: 500 mg, single
     Route: 042
  4. GUTTAE IOPODINE [Concomitant]
  5. GUTTAE TRAVARTAN [Concomitant]

REACTIONS (1)
  - Non-infectious endophthalmitis [Recovered/Resolved]
